FAERS Safety Report 9629439 (Version 1)
Quarter: 2013Q4

REPORT INFORMATION
  Report Type: Spontaneous
  Country: US (occurrence: US)
  Receive Date: 20131017
  Receipt Date: 20131017
  Transmission Date: 20140711
  Serious: No
  Sender: FDA-Public Use
  Company Number: US-ASTRAZENECA-2013SE59031

PATIENT
  Age: 59 Year
  Sex: Female
  Weight: 69.9 kg

DRUGS (10)
  1. CRESTOR [Suspect]
     Indication: BLOOD CHOLESTEROL INCREASED
     Route: 048
  2. CRESTOR [Suspect]
     Indication: BLOOD CHOLESTEROL INCREASED
     Route: 048
     Dates: start: 2007
  3. HCTZ [Suspect]
     Route: 065
  4. ZEGERID [Suspect]
     Route: 065
     Dates: start: 2006
  5. MULTIPLE VITAMINS [Concomitant]
     Dosage: DAILY
  6. METOPROLOL TARTRATE [Concomitant]
     Indication: HYPERTENSION
  7. DIOVAN [Concomitant]
     Indication: HYPERTENSION
  8. MIRALAX [Concomitant]
     Indication: CONSTIPATION
  9. AMLODIPINE [Concomitant]
     Indication: HYPERTENSION
  10. BABY ASPIRIN [Concomitant]

REACTIONS (3)
  - Blood cholesterol abnormal [Not Recovered/Not Resolved]
  - Intentional drug misuse [Not Recovered/Not Resolved]
  - Drug ineffective [Not Recovered/Not Resolved]
